FAERS Safety Report 21978214 (Version 3)
Quarter: 2023Q1

REPORT INFORMATION
  Report Type: Spontaneous
  Country: US (occurrence: US)
  Receive Date: 20230210
  Receipt Date: 20230327
  Transmission Date: 20230418
  Serious: Yes (Other)
  Sender: FDA-Public Use
  Company Number: US-PFIZER INC-202300056766

PATIENT
  Age: 71 Year
  Sex: Female
  Weight: 70.76 kg

DRUGS (1)
  1. NIVESTYM [Suspect]
     Active Substance: FILGRASTIM-AAFI
     Indication: Chemotherapy
     Dosage: UNK, CYCLIC, [ONE PER DAY FOR FIVE DAYS EVERY OTHER WEEK]
     Dates: start: 202208

REACTIONS (3)
  - Drug dose omission by device [Unknown]
  - Device defective [Unknown]
  - Blood test abnormal [Unknown]

NARRATIVE: CASE EVENT DATE: 20230116
